FAERS Safety Report 4293037-7 (Version None)
Quarter: 2004Q1

REPORT INFORMATION
  Report Type: 
  Country: None (occurrence: None)
  Receive Date: 20040210
  Receipt Date: 20040205
  Transmission Date: 20041129
  Serious: Yes (Disabling)
  Sender: FDA-Public Use
  Company Number: 2004196386FR

PATIENT
  Sex: Female

DRUGS (3)
  1. XANAX [Suspect]
     Dosage: 1 DF, QD, ORAL
     Route: 048
     Dates: end: 20031102
  2. PAROXETINE HCL [Suspect]
     Dosage: 20 MG, QD, ORAL
     Route: 048
     Dates: end: 20031102
  3. LEVONORGESTREL [Suspect]
     Dosage: 2 DF, QD, ORAL
     Route: 048
     Dates: start: 20031002, end: 20031002

REACTIONS (4)
  - CHROMOSOME ABNORMALITY [None]
  - CONGENITAL BLADDER ANOMALY [None]
  - MATERNAL DRUGS AFFECTING FOETUS [None]
  - URINARY TRACT MALFORMATION [None]
